FAERS Safety Report 4454944-5 (Version None)
Quarter: 2004Q3

REPORT INFORMATION
  Report Type: 
  Country: None (occurrence: None)
  Receive Date: 20040921
  Receipt Date: 20040909
  Transmission Date: 20050211
  Serious: Yes (Life-Threatening, Hospitalization)
  Sender: FDA-Public Use
  Company Number: PL-ROCHE-380331

PATIENT
  Age: 72 Year
  Sex: Male

DRUGS (1)
  1. XELODA [Suspect]
     Indication: COLORECTAL CANCER METASTATIC
     Route: 048
     Dates: start: 20040815, end: 20040815

REACTIONS (4)
  - CREATININE RENAL CLEARANCE INCREASED [None]
  - DIARRHOEA [None]
  - GRANULOCYTOPENIA [None]
  - LEUKOPENIA [None]
